FAERS Safety Report 9851410 (Version 2)
Quarter: 2014Q2

REPORT INFORMATION
  Report Type: Spontaneous
  Country: DE (occurrence: DE)
  Receive Date: 20140129
  Receipt Date: 20140609
  Transmission Date: 20141212
  Serious: Yes (Other)
  Sender: FDA-Public Use
  Company Number: DE-AMGEN-DEUSP2014005845

PATIENT
  Age: 73 Year
  Sex: Female

DRUGS (5)
  1. ENBREL [Suspect]
     Indication: RHEUMATOID ARTHRITIS
     Dosage: 25 MG, WEEKLY
     Route: 065
     Dates: start: 20130516
  2. ENBREL [Suspect]
     Dosage: 50 MG, QWK
     Route: 065
     Dates: start: 201405
  3. MTX                                /00113802/ [Concomitant]
     Dosage: 7.5 MG, UNK
  4. CORTISON [Concomitant]
     Dosage: 5 MG, UNK
  5. FOLIC ACID [Concomitant]
     Dosage: UNK

REACTIONS (4)
  - Rheumatoid arthritis [Not Recovered/Not Resolved]
  - Motor dysfunction [Not Recovered/Not Resolved]
  - Joint swelling [Not Recovered/Not Resolved]
  - Osteoarthritis [Unknown]
